FAERS Safety Report 8072330-6 (Version None)
Quarter: 2012Q1

REPORT INFORMATION
  Report Type: 
  Country: None (occurrence: None)
  Receive Date: 20120124
  Receipt Date: 20120124
  Transmission Date: 20120608
  Serious: Yes (Hospitalization)
  Sender: FDA-Public Use
  Company Number: None

PATIENT
  Sex: Male
  Weight: 62.27 kg

DRUGS (1)
  1. PROSCAR [Suspect]
     Dosage: 5 MG

REACTIONS (1)
  - COLON CANCER METASTATIC [None]
